FAERS Safety Report 25358527 (Version 1)
Quarter: 2025Q2

REPORT INFORMATION
  Report Type: Spontaneous
  Country: US (occurrence: US)
  Receive Date: 20250526
  Receipt Date: 20250526
  Transmission Date: 20250716
  Serious: Yes (Life-Threatening, Other)
  Sender: TEVA
  Company Number: US-TEVA-VS-3333413

PATIENT

DRUGS (3)
  1. AMPHETAMINE\DEXTROAMPHETAMINE [Suspect]
     Active Substance: AMPHETAMINE\DEXTROAMPHETAMINE
     Indication: Narcolepsy
     Route: 048
  2. AMPHETAMINE\DEXTROAMPHETAMINE [Suspect]
     Active Substance: AMPHETAMINE\DEXTROAMPHETAMINE
     Indication: Narcolepsy
     Route: 048
  3. AMPHETAMINE\DEXTROAMPHETAMINE [Suspect]
     Active Substance: AMPHETAMINE\DEXTROAMPHETAMINE
     Indication: Narcolepsy
     Route: 048

REACTIONS (10)
  - Autonomic nervous system imbalance [Unknown]
  - Vision blurred [Unknown]
  - Gastrointestinal motility disorder [Unknown]
  - Gastrointestinal disorder [Unknown]
  - Asthenia [Unknown]
  - Speech disorder [Unknown]
  - Treatment failure [Unknown]
  - Movement disorder [Unknown]
  - Impaired work ability [Unknown]
  - Syncope [Unknown]
